FAERS Safety Report 8450335-0 (Version None)
Quarter: 2012Q2

REPORT INFORMATION
  Report Type: 
  Country: None (occurrence: None)
  Receive Date: 20120620
  Receipt Date: 20120614
  Transmission Date: 20120825
  Serious: No
  Sender: FDA-Public Use
  Company Number: PHEH2012US012100

PATIENT
  Sex: Female

DRUGS (6)
  1. TASIGNA [Suspect]
     Indication: CHRONIC MYELOID LEUKAEMIA
  2. COLACE [Concomitant]
  3. FERROUS SULFATE TAB [Concomitant]
  4. ASPIRIN [Concomitant]
  5. PROZAC [Concomitant]
     Dosage: UNK
  6. ATIVAN [Concomitant]

REACTIONS (2)
  - CONSTIPATION [None]
  - FATIGUE [None]
